FAERS Safety Report 14699774 (Version 2)
Quarter: 2019Q2

REPORT INFORMATION
  Report Type: Spontaneous
  Country: PT (occurrence: PT)
  Receive Date: 20180330
  Receipt Date: 20190513
  Transmission Date: 20190711
  Serious: Yes (Other)
  Sender: FDA-Public Use
  Company Number: PT-MYLANLABS-2018M1018985

PATIENT
  Age: 81 Year
  Sex: Female

DRUGS (1)
  1. WARFARIN [Suspect]
     Active Substance: WARFARIN
     Indication: ANTICOAGULANT THERAPY
     Dosage: UNK
     Route: 048

REACTIONS (3)
  - Anaemia [Recovered/Resolved]
  - International normalised ratio fluctuation [Recovered/Resolved]
  - Gastrointestinal haemorrhage [Recovered/Resolved]
